FAERS Safety Report 7428353-0 (Version None)
Quarter: 2011Q2

REPORT INFORMATION
  Report Type: 
  Country: None (occurrence: None)
  Receive Date: 20110418
  Receipt Date: 20110418
  Transmission Date: 20111010
  Serious: No
  Sender: FDA-Public Use
  Company Number: None

PATIENT
  Age: 75 Year
  Sex: Female
  Weight: 72.5755 kg

DRUGS (1)
  1. BONIVA [Suspect]
     Indication: OSTEOPOROSIS
     Dosage: 1 TABLET ONCE A MONTH
     Dates: start: 20110101, end: 20110202

REACTIONS (3)
  - FEELING ABNORMAL [None]
  - PAIN IN EXTREMITY [None]
  - GAIT DISTURBANCE [None]
